FAERS Safety Report 25718562 (Version 1)
Quarter: 2025Q3

REPORT INFORMATION
  Report Type: Spontaneous
  Country: US (occurrence: US)
  Receive Date: 20250823
  Receipt Date: 20250823
  Transmission Date: 20251020
  Serious: Yes (Other)
  Sender: MSN LABORATORIES PRIVATE LIMITED
  Company Number: US-MSNLABS-2025MSNLIT02345

PATIENT

DRUGS (1)
  1. SIROLIMUS [Suspect]
     Active Substance: SIROLIMUS
     Indication: Lymphangioleiomyomatosis
     Dosage: 1-2 MG/DAY
     Route: 065

REACTIONS (2)
  - Premature labour [Unknown]
  - Maternal exposure during pregnancy [Unknown]
